FAERS Safety Report 15836107 (Version 1)
Quarter: 2019Q1

REPORT INFORMATION
  Report Type: Spontaneous
  Country: US (occurrence: US)
  Receive Date: 20190116
  Receipt Date: 20190116
  Transmission Date: 20190417
  Serious: No
  Sender: FDA-Public Use
  Company Number: None

PATIENT
  Sex: Female

DRUGS (7)
  1. COLCHICINE. [Concomitant]
     Active Substance: COLCHICINE
  2. DOXEPIN [Concomitant]
     Active Substance: DOXEPIN
  3. LEVOCETIRIZINE [Concomitant]
     Active Substance: LEVOCETIRIZINE
  4. OCALIVA [Suspect]
     Active Substance: OBETICHOLIC ACID
     Indication: PRIMARY BILIARY CHOLANGITIS
     Dosage: ?          OTHER FREQUENCY:ONCE A WEEK;?
     Route: 048
     Dates: start: 20181220
  5. OMEPRAZOLE. [Concomitant]
     Active Substance: OMEPRAZOLE
  6. MEDROXPR AC INJ [Concomitant]
  7. NADOLOL. [Concomitant]
     Active Substance: NADOLOL

REACTIONS (2)
  - Pruritus [None]
  - Peripheral swelling [None]
